FAERS Safety Report 9723656 (Version 1)
Quarter: 2013Q4

REPORT INFORMATION
  Report Type: Spontaneous
  Country: FR (occurrence: FR)
  Receive Date: 20131202
  Receipt Date: 20131202
  Transmission Date: 20140711
  Serious: Yes (Hospitalization)
  Sender: FDA-Public Use
  Company Number: FR-GLAXOSMITHKLINE-B0946529A

PATIENT
  Age: 63 Year
  Sex: Male

DRUGS (8)
  1. ZELITREX [Suspect]
     Indication: PRODUCT USED FOR UNKNOWN INDICATION
     Route: 048
     Dates: start: 20131029
  2. ADIAZINE [Suspect]
     Indication: CEREBRAL TOXOPLASMOSIS
     Route: 048
     Dates: start: 20131029, end: 20131104
  3. MALOCIDE [Suspect]
     Indication: CEREBRAL TOXOPLASMOSIS
     Route: 048
     Dates: start: 20131029, end: 20131104
  4. XATRAL [Concomitant]
  5. SERESTA [Concomitant]
  6. ATARAX [Concomitant]
     Dates: start: 20131029
  7. DIFFU K [Concomitant]
     Dates: start: 20131029
  8. FUNGIZONE [Concomitant]
     Dates: start: 20131029

REACTIONS (3)
  - Renal failure acute [Recovered/Resolved]
  - Blood creatinine increased [Recovered/Resolved]
  - Blood urea increased [Recovered/Resolved]
